FAERS Safety Report 4970128-6 (Version None)
Quarter: 2006Q2

REPORT INFORMATION
  Report Type: 
  Country: None (occurrence: None)
  Receive Date: 20060406
  Receipt Date: 20060329
  Transmission Date: 20061013
  Serious: Yes (Death, Other)
  Sender: FDA-Public Use
  Company Number: 2006043800

PATIENT
  Age: 65 Year
  Sex: Female

DRUGS (2)
  1. GEODON [Suspect]
     Indication: AGITATION
     Dosage: (20 MG, INTRAMUSCULAR)
     Route: 030
     Dates: start: 20060101
  2. ALL OTHER THERAPEUTIC PRODUCTS (ALL OTHER THERAPEUTIC PRODUCTS) [Concomitant]

REACTIONS (1)
  - CARDIO-RESPIRATORY ARREST [None]
